FAERS Safety Report 6822386-0 (Version None)
Quarter: 2010Q3

REPORT INFORMATION
  Report Type: 
  Country: None (occurrence: None)
  Receive Date: 20100708
  Receipt Date: 20100629
  Transmission Date: 20110219
  Serious: Yes (Other)
  Sender: FDA-Public Use
  Company Number: PHHY2010DE42877

PATIENT
  Age: 54 Year
  Sex: Female

DRUGS (1)
  1. TEGRETOL [Suspect]
     Indication: EPILEPSY
     Dosage: 800 MG, BID
     Route: 048
     Dates: end: 20100623

REACTIONS (5)
  - COLD SWEAT [None]
  - DRUG LEVEL INCREASED [None]
  - DRUG TOXICITY [None]
  - FLUID INTAKE REDUCED [None]
  - SOMNOLENCE [None]
